FAERS Safety Report 23788172 (Version 1)
Quarter: 2024Q2

REPORT INFORMATION
  Report Type: Spontaneous
  Country: US (occurrence: None)
  Receive Date: 20240425
  Receipt Date: 20240425
  Transmission Date: 20240716
  Serious: Yes (Other)
  Sender: FDA-Public Use
  Company Number: None

PATIENT
  Age: 61 Year
  Sex: Female

DRUGS (1)
  1. KISQALI [Suspect]
     Active Substance: RIBOCICLIB
     Indication: Breast cancer
     Dosage: FREQUENCY : AS DIRECTED;?
     Route: 048
     Dates: end: 20240425

REACTIONS (2)
  - Malignant neoplasm progression [None]
  - Breast cancer female [None]

NARRATIVE: CASE EVENT DATE: 20240425
